FAERS Safety Report 7494313-7 (Version None)
Quarter: 2011Q2

REPORT INFORMATION
  Report Type: 
  Country: None (occurrence: None)
  Receive Date: 20110520
  Receipt Date: 20110517
  Transmission Date: 20111010
  Serious: Yes (Other)
  Sender: FDA-Public Use
  Company Number: GXKR2011DE01749

PATIENT
  Age: 88 Year
  Sex: Female

DRUGS (1)
  1. METRONIDAZOLE [Suspect]
     Dosage: 400 MG, BID
     Route: 048

REACTIONS (3)
  - HALLUCINATION, AUDITORY [None]
  - CHROMATURIA [None]
  - CONFUSIONAL STATE [None]
